FAERS Safety Report 25649930 (Version 1)
Quarter: 2025Q3

REPORT INFORMATION
  Report Type: Spontaneous
  Country: US (occurrence: None)
  Receive Date: 20250805
  Receipt Date: 20250805
  Transmission Date: 20251021
  Serious: Yes (Hospitalization)
  Sender: FDA-CTU
  Company Number: None

PATIENT
  Age: 53 Year
  Sex: Female
  Weight: 59 kg

DRUGS (1)
  1. DESMOPRESSIN ACETATE [Suspect]
     Active Substance: DESMOPRESSIN ACETATE
     Indication: Diabetes insipidus
     Dosage: FREQUENCY : TWICE A DAY;?
     Route: 058
     Dates: start: 20250704

REACTIONS (2)
  - Hyponatraemia [None]
  - Dizziness [None]

NARRATIVE: CASE EVENT DATE: 20250716
